FAERS Safety Report 22518585 (Version 1)
Quarter: 2023Q2

REPORT INFORMATION
  Report Type: Spontaneous
  Country: HR (occurrence: HR)
  Receive Date: 20230605
  Receipt Date: 20230605
  Transmission Date: 20230721
  Serious: Yes (Other)
  Sender: FDA-Public Use
  Company Number: None

PATIENT
  Age: 51 Year
  Sex: Female
  Weight: 134 kg

DRUGS (7)
  1. SAXENDA [Suspect]
     Active Substance: LIRAGLUTIDE
     Dosage: 1.8 MG, QD
     Route: 058
  2. SAXENDA [Suspect]
     Active Substance: LIRAGLUTIDE
     Dosage: 2.4 MG (GRADUALLY INCREASING THE DOSE IN 4 WEEKS)
     Route: 058
  3. SAXENDA [Suspect]
     Active Substance: LIRAGLUTIDE
     Indication: Obesity
     Dosage: 0.6 MG
     Route: 058
     Dates: start: 20230421
  4. KENDURAL C [Concomitant]
     Indication: Anaemia
     Dosage: UNK
     Route: 048
  5. INDAPAMIDE\PERINDOPRIL ERBUMINE [Concomitant]
     Active Substance: INDAPAMIDE\PERINDOPRIL ERBUMINE
     Indication: Blood pressure increased
     Dosage: 1 DF DAY (? TO 1 TABLET DAILY )
     Route: 048
  6. METFORMIN HYDROCHLORIDE [Concomitant]
     Active Substance: METFORMIN HYDROCHLORIDE
     Indication: Glucose tolerance impaired
     Dosage: UNK
     Route: 048
  7. UTROGESTAN [Concomitant]
     Active Substance: PROGESTERONE
     Indication: Dysmenorrhoea
     Dosage: 100 MG, BID (FROM THE 5TH TO 25TH DAY OF THE CYCLE)

REACTIONS (8)
  - Syncope [Recovering/Resolving]
  - Dyschezia [Recovering/Resolving]
  - Negative thoughts [Recovering/Resolving]
  - Somnolence [Recovering/Resolving]
  - Decreased appetite [Recovering/Resolving]
  - Eructation [Recovering/Resolving]
  - Insomnia [Recovering/Resolving]
  - Injection site bruising [Recovering/Resolving]

NARRATIVE: CASE EVENT DATE: 20230424
